FAERS Safety Report 18026570 (Version 4)
Quarter: 2020Q3

REPORT INFORMATION
  Report Type: Spontaneous
  Country: CA (occurrence: CA)
  Receive Date: 20200715
  Receipt Date: 20200911
  Transmission Date: 20201103
  Serious: Yes (Hospitalization, Other)
  Sender: FDA-Public Use
  Company Number: CA-SHIRE-CA202022252

PATIENT

DRUGS (31)
  1. ULORIC [Suspect]
     Active Substance: FEBUXOSTAT
     Indication: PRODUCT USED FOR UNKNOWN INDICATION
     Route: 065
  2. PREDNISONE. [Concomitant]
     Active Substance: PREDNISONE
     Indication: PRODUCT USED FOR UNKNOWN INDICATION
  3. TACHOSIL [Suspect]
     Active Substance: FIBRINOGEN HUMAN\THROMBIN HUMAN
     Indication: PRODUCT USED FOR UNKNOWN INDICATION
     Route: 065
  4. SALOFALK [MESALAZINE] [Suspect]
     Active Substance: MESALAMINE
     Indication: PRODUCT USED FOR UNKNOWN INDICATION
     Route: 065
  5. SIMPONI [Concomitant]
     Active Substance: GOLIMUMAB
     Indication: PRODUCT USED FOR UNKNOWN INDICATION
  6. XELJANZ [Concomitant]
     Active Substance: TOFACITINIB CITRATE
     Indication: PRODUCT USED FOR UNKNOWN INDICATION
  7. TYSABRI [Concomitant]
     Active Substance: NATALIZUMAB
     Indication: PRODUCT USED FOR UNKNOWN INDICATION
  8. KAZANO [Suspect]
     Active Substance: ALOGLIPTIN BENZOATE\METFORMIN HYDROCHLORIDE
     Indication: PRODUCT USED FOR UNKNOWN INDICATION
     Route: 065
  9. IMURAN [Concomitant]
     Active Substance: AZATHIOPRINE
     Indication: PRODUCT USED FOR UNKNOWN INDICATION
  10. PREGABALIN. [Concomitant]
     Active Substance: PREGABALIN
     Indication: PRODUCT USED FOR UNKNOWN INDICATION
  11. ASPIRINE [Concomitant]
     Active Substance: ASPIRIN
     Indication: PRODUCT USED FOR UNKNOWN INDICATION
  12. MEZAVANT [Suspect]
     Active Substance: MESALAMINE
     Indication: PRODUCT USED FOR UNKNOWN INDICATION
     Route: 065
  13. AMLODIPINE [Concomitant]
     Active Substance: AMLODIPINE BESYLATE
     Indication: PRODUCT USED FOR UNKNOWN INDICATION
  14. ENTYVIO [Suspect]
     Active Substance: VEDOLIZUMAB
     Dosage: 300 MILLIGRAM
     Route: 042
     Dates: start: 20200115
  15. OMNARIS [Suspect]
     Active Substance: CICLESONIDE
     Indication: PRODUCT USED FOR UNKNOWN INDICATION
     Dosage: UNK
     Route: 055
  16. ONDISSOLVE [Suspect]
     Active Substance: ONDANSETRON
     Indication: PRODUCT USE ISSUE
     Route: 065
  17. REMSIMA [Concomitant]
     Active Substance: INFLIXIMAB
     Indication: PRODUCT USED FOR UNKNOWN INDICATION
  18. CIMZIA [Concomitant]
     Active Substance: CERTOLIZUMAB PEGOL
     Indication: PRODUCT USED FOR UNKNOWN INDICATION
  19. PENTASA [Concomitant]
     Active Substance: MESALAMINE
     Indication: PRODUCT USED FOR UNKNOWN INDICATION
  20. REMICADE [Concomitant]
     Active Substance: INFLIXIMAB
     Indication: PRODUCT USED FOR UNKNOWN INDICATION
  21. PURINETHOL [Concomitant]
     Active Substance: MERCAPTOPURINE
     Indication: PRODUCT USED FOR UNKNOWN INDICATION
  22. ATORVASTATIN [Concomitant]
     Active Substance: ATORVASTATIN
     Indication: PRODUCT USED FOR UNKNOWN INDICATION
  23. ENTYVIO [Suspect]
     Active Substance: VEDOLIZUMAB
     Indication: COLITIS ULCERATIVE
     Dosage: 300 MILLIGRAM
     Route: 042
     Dates: start: 20200115
  24. PANTOLOC [PANTOPRAZOLE] [Suspect]
     Active Substance: PANTOPRAZOLE SODIUM
     Indication: PRODUCT USE ISSUE
     Route: 065
  25. NESINA [Suspect]
     Active Substance: ALOGLIPTIN BENZOATE
     Indication: PRODUCT USED FOR UNKNOWN INDICATION
     Route: 065
  26. METHOTREXATE. [Concomitant]
     Active Substance: METHOTREXATE
     Indication: PRODUCT USED FOR UNKNOWN INDICATION
  27. STELARA [Concomitant]
     Active Substance: USTEKINUMAB
     Indication: PRODUCT USED FOR UNKNOWN INDICATION
  28. OMNARIS [Suspect]
     Active Substance: CICLESONIDE
     Dosage: 300 MILLIGRAM, 1X/DAY:QD
     Route: 045
  29. TECTA [Suspect]
     Active Substance: PANTOPRAZOLE MAGNESIUM
     Indication: PRODUCT USED FOR UNKNOWN INDICATION
     Route: 065
  30. INFLECTRA [Concomitant]
     Active Substance: INFLIXIMAB-DYYB
     Indication: PRODUCT USED FOR UNKNOWN INDICATION
  31. MORPHINE [Concomitant]
     Active Substance: MORPHINE
     Indication: PRODUCT USED FOR UNKNOWN INDICATION

REACTIONS (5)
  - Tonsil cancer [Not Recovered/Not Resolved]
  - Appetite disorder [Unknown]
  - Product use issue [Unknown]
  - SARS-CoV-2 test positive [Recovered/Resolved]
  - Diarrhoea [Unknown]

NARRATIVE: CASE EVENT DATE: 2020
